FAERS Safety Report 10043547 (Version 1)
Quarter: 2014Q1

REPORT INFORMATION
  Report Type: Spontaneous
  Country: US (occurrence: US)
  Receive Date: 20140328
  Receipt Date: 20140328
  Transmission Date: 20141002
  Serious: No
  Sender: FDA-Public Use
  Company Number: US-PFIZER INC-2014086100

PATIENT
  Age: 63 Year
  Sex: Female
  Weight: 58.5 kg

DRUGS (2)
  1. PREMARIN [Suspect]
     Indication: VULVOVAGINAL DRYNESS
     Dosage: 1 G, 1X/DAY
     Route: 067
     Dates: start: 20140227, end: 20140301
  2. TYLENOL [Concomitant]
     Dosage: UNK

REACTIONS (2)
  - Vulvovaginal burning sensation [Recovering/Resolving]
  - Vulvovaginal discomfort [Unknown]
